FAERS Safety Report 6078404-3 (Version None)
Quarter: 2009Q1

REPORT INFORMATION
  Report Type: 
  Country: None (occurrence: None)
  Receive Date: 20090212
  Receipt Date: 20090204
  Transmission Date: 20090719
  Serious: Yes (Other)
  Sender: FDA-Public Use
  Company Number: OSCN-PR-0902S-0053

PATIENT
  Sex: Female

DRUGS (1)
  1. OMNISCAN [Suspect]
     Indication: RENAL TRANSPLANT
     Dosage: SINGLE DOSE
     Dates: start: 20061030, end: 20061030

REACTIONS (1)
  - NEPHROGENIC SYSTEMIC FIBROSIS [None]
